FAERS Safety Report 7496628-5 (Version None)
Quarter: 2011Q2

REPORT INFORMATION
  Report Type: 
  Country: None (occurrence: None)
  Receive Date: 20110523
  Receipt Date: 20110512
  Transmission Date: 20111010
  Serious: Yes (Other)
  Sender: FDA-Public Use
  Company Number: US-ASTRAZENECA-2009SE21262

PATIENT
  Age: 21 Year
  Sex: Male
  Weight: 119.3 kg

DRUGS (9)
  1. SEROQUEL [Suspect]
     Dosage: 25 MGS AT 3 PM AND 25 MGS AT 8 PM
     Route: 048
  2. DEPAKOTE [Concomitant]
     Route: 065
  3. FISH OIL [Concomitant]
  4. SEROQUEL [Suspect]
     Route: 048
     Dates: end: 20100105
  5. CARVEDILOL [Concomitant]
  6. VITAMIN D [Concomitant]
  7. SIMVASTATIN [Concomitant]
  8. SEROQUEL [Suspect]
     Route: 048
  9. LAMICTAL [Concomitant]
     Route: 065

REACTIONS (10)
  - WEIGHT INCREASED [None]
  - BLOOD PRESSURE FLUCTUATION [None]
  - LOSS OF CONSCIOUSNESS [None]
  - DISORIENTATION [None]
  - TARDIVE DYSKINESIA [None]
  - ABNORMAL BEHAVIOUR [None]
  - DRUG DOSE OMISSION [None]
  - SENSORY LOSS [None]
  - AGGRESSION [None]
  - CONVULSION [None]
